FAERS Safety Report 9632962 (Version 2)
Quarter: 2013Q4

REPORT INFORMATION
  Report Type: Report from Study
  Country: US (occurrence: US)
  Receive Date: 20131018
  Receipt Date: 20131108
  Transmission Date: 20140711
  Serious: Yes (Hospitalization)
  Sender: FDA-Public Use
  Company Number: US-ABBVIE-13P-163-1157193-00

PATIENT
  Age: 61 Year
  Sex: Male
  Weight: 101 kg

DRUGS (7)
  1. HUMIRA [Suspect]
     Indication: PSORIATIC ARTHROPATHY
     Route: 058
     Dates: start: 201306, end: 201306
  2. HUMIRA [Suspect]
     Indication: PSORIASIS
     Dosage: 1 WEEK AFTER INITIAL DOSE
     Route: 058
     Dates: start: 201306
  3. MORTIN [Concomitant]
     Indication: MUSCULOSKELETAL PAIN
  4. MORTIN [Concomitant]
     Indication: PAIN IN EXTREMITY
  5. MORTIN [Concomitant]
     Indication: ARTHRALGIA
  6. LISINOPRIL [Concomitant]
     Indication: HYPERTENSION
  7. TAMSULOSIN [Concomitant]
     Indication: POLLAKIURIA

REACTIONS (8)
  - Chills [Recovered/Resolved]
  - Respiratory tract infection viral [Recovering/Resolving]
  - Pyrexia [Recovered/Resolved]
  - Hypertension [Unknown]
  - Nail infection [Unknown]
  - Pharyngitis streptococcal [Unknown]
  - Cough [Recovering/Resolving]
  - Localised infection [Recovered/Resolved]
